FAERS Safety Report 25341299 (Version 1)
Quarter: 2025Q2

REPORT INFORMATION
  Report Type: Spontaneous
  Country: US (occurrence: None)
  Receive Date: 20250521
  Receipt Date: 20250521
  Transmission Date: 20250716
  Serious: Yes (Death)
  Sender: FDA-CTU
  Company Number: None

PATIENT
  Age: 71 Year
  Sex: Male

DRUGS (11)
  1. REPATHA [Suspect]
     Active Substance: EVOLOCUMAB
     Indication: Ischaemic cardiomyopathy
     Dosage: FREQUENCY : EVERY OTHER WEEK;?
     Route: 058
     Dates: start: 20170630
  2. ACIDOPHILUS CAP [Concomitant]
  3. ALKA-SEL TZER TAB [Concomitant]
  4. AM BIEN CR TAB [Concomitant]
  5. ASPIRIN CHW [Concomitant]
  6. ASPIRIN [Concomitant]
     Active Substance: ASPIRIN
  7. ASPIRIN EC B COMPLEX CAP [Concomitant]
  8. CARVEDILOL [Concomitant]
     Active Substance: CARVEDILOL
  9. CENTRUM TAB SILVER [Concomitant]
  10. D-2000 MAXIMUM STRENGTH [Concomitant]
  11. PERCOCET TAB [Concomitant]

REACTIONS (1)
  - Death [None]

NARRATIVE: CASE EVENT DATE: 20250429
